FAERS Safety Report 6752414-2 (Version None)
Quarter: 2010Q2

REPORT INFORMATION
  Report Type: 
  Country: None (occurrence: None)
  Receive Date: 20100528
  Receipt Date: 20100521
  Transmission Date: 20101027
  Serious: Yes (Life-Threatening)
  Sender: FDA-Public Use
  Company Number: BCN-AA-2010-US-042

PATIENT
  Sex: Female
  Weight: 66.2252 kg

DRUGS (1)
  1. SEASONALE [Suspect]
     Dosage: SINGLE DOSE, 2 TABS ORAL
     Route: 048
     Dates: start: 20100428

REACTIONS (1)
  - BREAST CANCER FEMALE [None]
